FAERS Safety Report 7202458-1 (Version None)
Quarter: 2010Q4

REPORT INFORMATION
  Report Type: 
  Country: None (occurrence: None)
  Receive Date: 20101229
  Receipt Date: 20101220
  Transmission Date: 20110411
  Serious: Yes (Other)
  Sender: FDA-Public Use
  Company Number: B0686616A

PATIENT

DRUGS (1)
  1. ZOVIRAX [Suspect]
     Route: 048

REACTIONS (1)
  - DEAFNESS [None]
